FAERS Safety Report 6108996-7 (Version None)
Quarter: 2009Q1

REPORT INFORMATION
  Report Type: 
  Country: None (occurrence: None)
  Receive Date: 20090310
  Receipt Date: 20090224
  Transmission Date: 20090719
  Serious: Yes (Other)
  Sender: FDA-Public Use
  Company Number: US-ELI_LILLY_AND_COMPANY-US200902007296

PATIENT
  Sex: Female

DRUGS (6)
  1. EVISTA [Suspect]
     Indication: OSTEOPOROSIS
     Dosage: UNK, UNKNOWN
     Route: 065
     Dates: start: 19990101
  2. FOSAMAX [Concomitant]
     Dosage: UNK, UNKNOWN
     Route: 065
  3. LISINOPRIL HYDROCHLORTHIAZID [Concomitant]
     Dosage: UNK, DAILY (1/D)
     Route: 065
  4. AMLODIPINE BESYLATE [Concomitant]
     Dosage: 5 MG, DAILY (1/D)
     Route: 065
  5. ASPIRIN [Concomitant]
     Dosage: UNK, UNKNOWN
     Route: 065
  6. OMEPRAZOLE [Concomitant]
     Dosage: UNK, UNKNOWN
     Route: 065

REACTIONS (1)
  - CARDIAC MURMUR [None]
